FAERS Safety Report 12883511 (Version 1)
Quarter: 2016Q4

REPORT INFORMATION
  Report Type: Spontaneous
  Country: US (occurrence: US)
  Receive Date: 20161025
  Receipt Date: 20161025
  Transmission Date: 20170207
  Serious: Yes (Hospitalization, Other)
  Sender: FDA-Public Use
  Company Number: US-SAOL THERAPEUTICS-2016SAO00765

PATIENT
  Age: 8 Year
  Sex: Female
  Weight: 30.6 kg

DRUGS (2)
  1. LIORESAL [Suspect]
     Active Substance: BACLOFEN
     Indication: CEREBRAL PALSY
  2. LIORESAL [Suspect]
     Active Substance: BACLOFEN
     Indication: MUSCLE SPASTICITY
     Dosage: 100 ?G, \DAY
     Route: 037
     Dates: start: 20150609

REACTIONS (3)
  - Device failure [Unknown]
  - Status epilepticus [Recovered/Resolved]
  - Hemiparesis [Unknown]

NARRATIVE: CASE EVENT DATE: 201607
